FAERS Safety Report 9366480 (Version 4)
Quarter: 2013Q3

REPORT INFORMATION
  Report Type: Spontaneous
  Country: US (occurrence: None)
  Receive Date: 20130620
  Receipt Date: 20130903
  Transmission Date: 20140515
  Serious: Yes (Hospitalization, Other)
  Sender: FDA-Public Use
  Company Number: 2013US001743

PATIENT
  Age: 82 Year
  Sex: Female
  Weight: 66 kg

DRUGS (10)
  1. ICLUSIG [Suspect]
     Indication: CHRONIC MYELOID LEUKAEMIA
     Route: 048
     Dates: start: 20130601, end: 20130605
  2. BABY ASPIRIN (ACETYLSALICYLIC ACID) [Concomitant]
  3. CALCIUM (CALCIUM) TABLET [Concomitant]
  4. MAGNESIIUM (MAGNESIUM) TABLET [Concomitant]
  5. MULTIVITAMIN (VITAMINS NOS) [Concomitant]
  6. VITAMIN D (VITAMIN D) CAPSULE [Concomitant]
  7. ROBAXIN (METHOCARBAMOL) [Concomitant]
  8. GLUCOSAMINE AND CHONDROITIN (CHONDROITIN SULFATE SODIUM, GLUCOSAMINE) [Concomitant]
  9. ALLOPURINOL [Concomitant]
  10. NEURONTIN (GABAPENTIN) [Concomitant]

REACTIONS (43)
  - Vision blurred [None]
  - Chest pain [None]
  - Hypoaesthesia [None]
  - Headache [None]
  - Arthralgia [None]
  - Myalgia [None]
  - Fatigue [None]
  - Abdominal pain [None]
  - Constipation [None]
  - Blood pressure increased [None]
  - Rash [None]
  - Insomnia [None]
  - Back pain [None]
  - Pain in jaw [None]
  - Nausea [None]
  - Muscle spasms [None]
  - Thrombocytopenia [None]
  - Pyrexia [None]
  - Diarrhoea [None]
  - Hyponatraemia [None]
  - Sinus tachycardia [None]
  - Lipase increased [None]
  - Pain [None]
  - Chills [None]
  - Asthenia [None]
  - Electrocardiogram abnormal [None]
  - Hypoaesthesia [None]
  - Hypoaesthesia [None]
  - Muscle spasms [None]
  - Pain in extremity [None]
  - Pain in extremity [None]
  - Vision blurred [None]
  - Hypertension [None]
  - Haemoglobin decreased [None]
  - Haematocrit decreased [None]
  - Blood glucose increased [None]
  - Bundle branch block right [None]
  - Bundle branch block left [None]
  - Left ventricular hypertrophy [None]
  - White blood cell count decreased [None]
  - Blood potassium decreased [None]
  - Blood calcium decreased [None]
  - Mitral valve incompetence [None]
